FAERS Safety Report 15318184 (Version 1)
Quarter: 2018Q3

REPORT INFORMATION
  Report Type: Spontaneous
  Country: US (occurrence: US)
  Receive Date: 20180825
  Receipt Date: 20180825
  Transmission Date: 20181010
  Serious: No
  Sender: FDA-Public Use
  Company Number: US-009507513-1808USA005699

PATIENT
  Age: 83 Year
  Sex: Female

DRUGS (2)
  1. COMTAN [Suspect]
     Active Substance: ENTACAPONE
     Dosage: UNK
  2. SINEMET [Suspect]
     Active Substance: CARBIDOPA\LEVODOPA
     Dosage: UNK

REACTIONS (6)
  - Adverse event [Unknown]
  - Hypokinesia [Unknown]
  - Gait inability [Unknown]
  - Dysstasia [Unknown]
  - Feeling abnormal [Unknown]
  - Movement disorder [Unknown]
